FAERS Safety Report 19865782 (Version 1)
Quarter: 2021Q3

REPORT INFORMATION
  Report Type: Spontaneous
  Country: US (occurrence: US)
  Receive Date: 20210920
  Receipt Date: 20210920
  Transmission Date: 20211014
  Serious: No
  Sender: FDA-Public Use
  Company Number: None

PATIENT
  Sex: Female

DRUGS (1)
  1. OTEZLA [Suspect]
     Active Substance: APREMILAST
     Indication: PSORIASIS
     Dosage: 1 TABLET  TWICE DAILY ORAL
     Route: 048
     Dates: start: 201908

REACTIONS (2)
  - Nausea [None]
  - Diarrhoea [None]
